FAERS Safety Report 14447297 (Version 1)
Quarter: 2018Q1

REPORT INFORMATION
  Report Type: Spontaneous
  Country: US (occurrence: US)
  Receive Date: 20180126
  Receipt Date: 20180126
  Transmission Date: 20180509
  Serious: Yes (Hospitalization)
  Sender: FDA-Public Use
  Company Number: US-SAOL THERAPEUTICS-2017SAO03451

PATIENT
  Age: 21 Year
  Sex: Male
  Weight: 73.16 kg

DRUGS (1)
  1. BACLOFEN. [Suspect]
     Active Substance: BACLOFEN
     Route: 037

REACTIONS (10)
  - Generalised tonic-clonic seizure [Recovered/Resolved]
  - Sedation [Unknown]
  - Urethral stenosis [Recovered/Resolved]
  - Acinetobacter infection [Recovered/Resolved]
  - Device failure [Unknown]
  - Dehydration [Recovered/Resolved]
  - Therapy non-responder [Unknown]
  - Autonomic nervous system imbalance [Recovered/Resolved]
  - White blood cell count increased [Recovered/Resolved]
  - Device occlusion [Unknown]

NARRATIVE: CASE EVENT DATE: 200803
